FAERS Safety Report 5168452-X (Version None)
Quarter: 2006Q4

REPORT INFORMATION
  Report Type: 
  Country: None (occurrence: None)
  Receive Date: 20061201
  Receipt Date: 20060727
  Transmission Date: 20070319
  Serious: Yes (Hospitalization)
  Sender: FDA-Public Use
  Company Number: 2006085038

PATIENT
  Age: 44 Year
  Sex: Female
  Weight: 49 kg

DRUGS (3)
  1. SILDENAFIL CITRATE [Suspect]
     Indication: PULMONARY HYPERTENSION
     Dosage: 37.5 MG (12.5 MG, 3 IN 1 D), ORAL
     Route: 048
     Dates: start: 20031217, end: 20050509
  2. FLOLAN [Suspect]
     Indication: PULMONARY HYPERTENSION
     Dosage: 41 NG/KG/MIN (CONTINUOUSLY), INTRAVENOUS
     Route: 042
     Dates: start: 20031112
  3. LASIX [Concomitant]

REACTIONS (15)
  - ARTHRALGIA [None]
  - ASTHENIA [None]
  - BLOOD PRESSURE DECREASED [None]
  - CONDITION AGGRAVATED [None]
  - DIZZINESS [None]
  - DYSSTASIA [None]
  - FLUSHING [None]
  - HYPOAESTHESIA [None]
  - HYPOAESTHESIA ORAL [None]
  - HYPOGEUSIA [None]
  - MALAISE [None]
  - MYALGIA [None]
  - PALPITATIONS [None]
  - PHOTOPSIA [None]
  - PULMONARY HYPERTENSION [None]
